FAERS Safety Report 7253135-2 (Version None)
Quarter: 2011Q1

REPORT INFORMATION
  Report Type: 
  Country: None (occurrence: None)
  Receive Date: 20110129
  Receipt Date: 20100127
  Transmission Date: 20110831
  Serious: No
  Sender: FDA-Public Use
  Company Number: US-ABBOTT-10P-163-0622664-00

PATIENT
  Sex: Female
  Weight: 71.732 kg

DRUGS (2)
  1. CONTRACEPTIVES [Concomitant]
     Indication: CONTRACEPTION
  2. HUMIRA [Suspect]
     Indication: CROHN'S DISEASE
     Dosage: LAST DOSE HELD
     Dates: start: 20090101

REACTIONS (5)
  - ARTHRALGIA [None]
  - PAIN IN EXTREMITY [None]
  - ARTHRITIS [None]
  - OEDEMA PERIPHERAL [None]
  - INSOMNIA [None]
